FAERS Safety Report 7363318-9 (Version None)
Quarter: 2011Q1

REPORT INFORMATION
  Report Type: 
  Country: None (occurrence: None)
  Receive Date: 20110321
  Receipt Date: 20110308
  Transmission Date: 20110831
  Serious: Yes (Hospitalization)
  Sender: FDA-Public Use
  Company Number: US-JNJFOC-20110100419

PATIENT
  Sex: Male
  Weight: 62.5 kg

DRUGS (7)
  1. INFLIXIMAB, RECOMBINANT [Suspect]
     Route: 042
  2. MESALAMINE [Concomitant]
     Route: 048
  3. INFLIXIMAB, RECOMBINANT [Suspect]
     Route: 042
  4. PREDNISONE [Concomitant]
  5. SOLU-MEDROL [Concomitant]
     Indication: PREMEDICATION
  6. INFLIXIMAB, RECOMBINANT [Suspect]
     Indication: CROHN'S DISEASE
     Dosage: 3RD INFUSION
     Route: 042
  7. CIPRO [Concomitant]

REACTIONS (2)
  - CROHN'S DISEASE [None]
  - UPPER LIMB FRACTURE [None]
